FAERS Safety Report 6303390-8 (Version None)
Quarter: 2009Q3

REPORT INFORMATION
  Report Type: 
  Country: None (occurrence: None)
  Receive Date: 20090810
  Receipt Date: 20090803
  Transmission Date: 20100115
  Serious: Yes (Hospitalization)
  Sender: FDA-Public Use
  Company Number: GB-ROCHE-646506

PATIENT
  Sex: Male

DRUGS (2)
  1. CAPECITABINE [Suspect]
     Indication: COLON CANCER
     Dosage: DOSE: 2500
     Route: 048
     Dates: start: 20090414
  2. BEVACIZUMAB [Suspect]
     Indication: COLON CANCER
     Dosage: DOSE: 608
     Route: 042
     Dates: start: 20090414

REACTIONS (1)
  - CELLULITIS [None]
